FAERS Safety Report 18478790 (Version 1)
Quarter: 2020Q4

REPORT INFORMATION
  Report Type: Spontaneous
  Country: US (occurrence: US)
  Receive Date: 20201109
  Receipt Date: 20201109
  Transmission Date: 20210114
  Serious: Yes (Other)
  Sender: FDA-Public Use
  Company Number: US-SPECGX-T202002173

PATIENT
  Age: 35 Year
  Sex: Male

DRUGS (4)
  1. HYDROMORPHONE [Suspect]
     Active Substance: HYDROMORPHONE
     Indication: ARTHRALGIA
     Dosage: 20 MILLIGRAM, Q3H
     Route: 042
  2. METHADONE [Suspect]
     Active Substance: METHADONE HYDROCHLORIDE
     Indication: ARTHRALGIA
     Dosage: 400 MILLIGRAM, QD
     Route: 048
  3. METHADONE [Suspect]
     Active Substance: METHADONE HYDROCHLORIDE
     Dosage: 50 MILLIGRAM, BID
     Route: 048
  4. MODAFINIL. [Suspect]
     Active Substance: MODAFINIL
     Indication: DEPRESSED LEVEL OF CONSCIOUSNESS
     Dosage: UNK
     Route: 065

REACTIONS (5)
  - Hypotension [Unknown]
  - Hyperaesthesia [Unknown]
  - Sleep apnoea syndrome [Unknown]
  - Myoclonus [Unknown]
  - Depressed level of consciousness [Unknown]
